FAERS Safety Report 4872362-2 (Version None)
Quarter: 2005Q4

REPORT INFORMATION
  Report Type: 
  Country: None (occurrence: None)
  Receive Date: 20051115
  Receipt Date: 20050818
  Transmission Date: 20060501
  Serious: Yes (Other)
  Sender: FDA-Public Use
  Company Number: 414949

PATIENT
  Age: 44 Year
  Sex: Female
  Weight: 85.3 kg

DRUGS (2)
  1. PEGASYS [Suspect]
     Indication: HEPATITIS C VIRUS
     Dosage: 90 MCG DAILY 1 PER WEEK SUBCUTANEOUS
     Route: 058
     Dates: start: 20050325
  2. COPEGUS [Suspect]
     Indication: HEPATITIS C VIRUS
     Dosage: 600 MG 2 PER DAY ORAL
     Route: 048
     Dates: start: 20050325

REACTIONS (10)
  - ALOPECIA [None]
  - AMNESIA [None]
  - ANOREXIA [None]
  - FATIGUE [None]
  - HYPERAESTHESIA [None]
  - IRRITABILITY [None]
  - PRURITUS [None]
  - RASH [None]
  - RED BLOOD CELL COUNT DECREASED [None]
  - WHITE BLOOD CELL COUNT DECREASED [None]
